FAERS Safety Report 8555698-3 (Version None)
Quarter: 2012Q3

REPORT INFORMATION
  Report Type: 
  Country: None (occurrence: None)
  Receive Date: 20120801
  Receipt Date: 20120723
  Transmission Date: 20120928
  Serious: Yes (Hospitalization)
  Sender: FDA-Public Use
  Company Number: GB-009507513-1207GBR010309

PATIENT

DRUGS (5)
  1. SUSTANON 250 [Suspect]
     Indication: MUSCULAR WEAKNESS
     Dosage: UNK
     Route: 030
  2. VITAMINS (UNSPECIFIED) [Concomitant]
     Indication: ROUTINE HEALTH MAINTENANCE
  3. DECA-DURABOLIN [Suspect]
     Indication: MUSCULAR WEAKNESS
     Route: 048
  4. METHOTREXATE [Concomitant]
     Indication: MYOPATHY
     Route: 030
  5. CREATINE [Concomitant]
     Indication: MEDICAL DIET

REACTIONS (5)
  - DRUG ABUSE [None]
  - DRUG INEFFECTIVE [None]
  - CARDIOMYOPATHY [None]
  - MYOPATHY [None]
  - VENTRICULAR TACHYCARDIA [None]
